FAERS Safety Report 16208596 (Version 1)
Quarter: 2019Q2

REPORT INFORMATION
  Report Type: Spontaneous
  Country: DZ (occurrence: DZ)
  Receive Date: 20190417
  Receipt Date: 20190417
  Transmission Date: 20190711
  Serious: Yes (Other)
  Sender: FDA-Public Use
  Company Number: DZ-ACCORD-123055

PATIENT
  Age: 51 Year
  Sex: Male
  Weight: 65 kg

DRUGS (3)
  1. HYLOM (OXALIPLATIN) [Suspect]
     Active Substance: OXALIPLATIN
     Indication: COLON CANCER
     Route: 042
     Dates: start: 20180715
  2. AMGEN (PANITUMUMAB) [Suspect]
     Active Substance: PANITUMUMAB
     Indication: COLON CANCER
     Dosage: ALSO RECEIVED AS SECOND CYCLE CAPOX + PANITUMUMAB (29/07/18) D1 D21
     Route: 042
     Dates: start: 20180715
  3. CAPEMAX (CAPECITABINE) [Suspect]
     Active Substance: CAPECITABINE
     Indication: COLON CANCER
     Dosage: 07 CP / D??PER OS (CPA 500 MG)
     Dates: start: 20180715

REACTIONS (1)
  - Gastrointestinal obstruction [Unknown]
